FAERS Safety Report 9534655 (Version 2)
Quarter: 2013Q4

REPORT INFORMATION
  Report Type: Spontaneous
  Country: US (occurrence: US)
  Receive Date: 20130918
  Receipt Date: 20131009
  Transmission Date: 20140711
  Serious: No
  Sender: FDA-Public Use
  Company Number: US-PFIZER INC-2013269633

PATIENT
  Age: 49 Year
  Sex: Female
  Weight: 74.83 kg

DRUGS (5)
  1. LYRICA [Suspect]
     Indication: FIBROMYALGIA
     Dosage: 150 MG, 2X/DAY
     Route: 048
     Dates: start: 20130314, end: 201308
  2. HYDROCODONE [Concomitant]
     Dosage: UNK
  3. PROZAC [Concomitant]
     Dosage: UNK
  4. METHOCARBAMOL [Concomitant]
     Dosage: 750 MG
  5. IBUPROFEN [Concomitant]
     Dosage: 800 MG

REACTIONS (1)
  - Pain [Not Recovered/Not Resolved]
